FAERS Safety Report 8325166-2 (Version None)
Quarter: 2012Q2

REPORT INFORMATION
  Report Type: 
  Country: None (occurrence: None)
  Receive Date: 20120501
  Receipt Date: 20100512
  Transmission Date: 20120825
  Serious: No
  Sender: FDA-Public Use
  Company Number: US-TEVA-2010002018

PATIENT
  Sex: Male
  Weight: 154.36 kg

DRUGS (1)
  1. NUVIGIL [Suspect]
     Indication: CIRCADIAN RHYTHM SLEEP DISORDER
     Dosage: 250 MILLIGRAM;
     Dates: start: 20091105, end: 20100103

REACTIONS (2)
  - EPISTAXIS [None]
  - BLOOD PRESSURE INCREASED [None]
